FAERS Safety Report 9239169 (Version 1)
Quarter: 2013Q2

REPORT INFORMATION
  Report Type: Spontaneous
  Country: US (occurrence: US)
  Receive Date: 20130418
  Receipt Date: 20130418
  Transmission Date: 20140414
  Serious: Yes (Hospitalization, Other)
  Sender: FDA-Public Use
  Company Number: US-ABBOTT-13P-163-1075171-00

PATIENT
  Sex: Female
  Weight: 59.02 kg

DRUGS (13)
  1. HUMIRA PEN [Suspect]
     Indication: PSORIASIS
     Dates: end: 2012
  2. HUMIRA PEN [Suspect]
     Indication: PSORIATIC ARTHROPATHY
  3. NORCO [Concomitant]
     Indication: PAIN
  4. ULTRAM [Concomitant]
     Indication: PAIN
  5. NEUROTIN [Concomitant]
     Indication: PAIN
  6. AMITRIPTYLINE [Concomitant]
     Indication: PRODUCT USED FOR UNKNOWN INDICATION
  7. CIPRO [Concomitant]
     Indication: PROPHYLAXIS URINARY TRACT INFECTION
  8. KLONOPIN [Concomitant]
     Indication: PANIC ATTACK
  9. CELEXA [Concomitant]
     Indication: DEPRESSION
  10. AMBIEN [Concomitant]
     Indication: INSOMNIA
  11. ESTROVEN [Concomitant]
     Indication: HORMONE REPLACEMENT THERAPY
  12. ZANAFLEX [Concomitant]
     Indication: MUSCLE SPASMS
  13. UNKNOWN OTC NAUSEA MEDICATION [Concomitant]
     Indication: NAUSEA

REACTIONS (12)
  - Scoliosis [Unknown]
  - Sjogren^s syndrome [Unknown]
  - Fibromyalgia [Unknown]
  - Therapeutic response unexpected [Unknown]
  - Therapeutic response unexpected [Unknown]
  - Enterococcal infection [Recovered/Resolved]
  - Enterococcal infection [Recovered/Resolved]
  - Respiratory tract infection [Unknown]
  - Cystitis [Recovered/Resolved]
  - Staphylococcal infection [Recovered/Resolved]
  - Vomiting [Unknown]
  - Condition aggravated [Unknown]
